FAERS Safety Report 5921105-X (Version None)
Quarter: 2008Q4

REPORT INFORMATION
  Report Type: 
  Country: None (occurrence: None)
  Receive Date: 20081016
  Receipt Date: 20081003
  Transmission Date: 20090506
  Serious: Yes (Other)
  Sender: FDA-Public Use
  Company Number: GB-ELI_LILLY_AND_COMPANY-GB200810001844

PATIENT
  Age: 70 Year
  Sex: Male

DRUGS (2)
  1. CYMBALTA [Suspect]
     Dosage: 60 MG, DAILY (1/D)
     Route: 065
     Dates: start: 20080101
  2. AMISULPRIDE [Concomitant]
     Dosage: UNK, UNKNOWN
     Route: 065

REACTIONS (2)
  - PROSTATOMEGALY [None]
  - URINARY RETENTION [None]
